FAERS Safety Report 12390027 (Version 3)
Quarter: 2016Q3

REPORT INFORMATION
  Report Type: Report from Study
  Country: AR (occurrence: AR)
  Receive Date: 20160520
  Receipt Date: 20160916
  Transmission Date: 20161109
  Serious: Yes (Hospitalization, Other)
  Sender: FDA-Public Use
  Company Number: AR-ABBVIE-16P-007-1633856-00

PATIENT
  Age: 69 Year
  Sex: Male

DRUGS (1)
  1. ZEMPLAR [Suspect]
     Active Substance: PARICALCITOL
     Indication: HYPERPARATHYROIDISM SECONDARY
     Route: 042
     Dates: start: 20130101

REACTIONS (4)
  - Peritonitis [Recovered/Resolved]
  - Catheter site infection [Recovered/Resolved]
  - Pyrexia [Unknown]
  - Renal haematoma [Recovering/Resolving]

NARRATIVE: CASE EVENT DATE: 20160514
